FAERS Safety Report 4324062-5 (Version None)
Quarter: 2004Q1

REPORT INFORMATION
  Report Type: 
  Country: None (occurrence: None)
  Receive Date: 20040326
  Receipt Date: 20031215
  Transmission Date: 20041129
  Serious: No
  Sender: FDA-Public Use
  Company Number: US-GLAXOSMITHKLINE-A0443194A

PATIENT
  Age: 68 Year
  Sex: Female

DRUGS (7)
  1. ADVAIR DISKUS 100/50 [Suspect]
     Indication: ASTHMA
     Dosage: 1PUFF TWICE PER DAY
     Route: 055
  2. LEVOXYL [Concomitant]
  3. ZYRTEC [Concomitant]
  4. VIOXX [Concomitant]
  5. DIOVAN [Concomitant]
  6. ESTRACE [Concomitant]
  7. ROGAINE 5 [Concomitant]

REACTIONS (1)
  - ALOPECIA [None]
